FAERS Safety Report 5295520-4 (Version None)
Quarter: 2007Q2

REPORT INFORMATION
  Report Type: 
  Country: None (occurrence: None)
  Receive Date: 20070406
  Receipt Date: 20070322
  Transmission Date: 20071010
  Serious: Yes (Death, Hospitalization)
  Sender: FDA-Public Use
  Company Number: 8021722

PATIENT
  Age: 63 Year
  Sex: Female

DRUGS (5)
  1. KEPPRA [Suspect]
     Indication: EPILEPSY
     Dosage: 500 MG /D PO
     Route: 048
     Dates: start: 20060701, end: 20060701
  2. SOLDESAM /00016002/ [Concomitant]
  3. WARFARIN [Concomitant]
  4. OMEPRAZOLE [Concomitant]
  5. CHEMOTHERAPY [Concomitant]

REACTIONS (3)
  - CONDITION AGGRAVATED [None]
  - HEPATITIS ACUTE [None]
  - HEPATORENAL FAILURE [None]
